FAERS Safety Report 18560075 (Version 1)
Quarter: 2020Q4

REPORT INFORMATION
  Report Type: Spontaneous
  Country: DK (occurrence: DK)
  Receive Date: 20201130
  Receipt Date: 20201130
  Transmission Date: 20210114
  Serious: Yes (Life-Threatening)
  Sender: FDA-Public Use
  Company Number: DK-FERRINGPH-2020FE08365

PATIENT
  Age: 80 Year
  Sex: Female
  Weight: 50 kg

DRUGS (9)
  1. AMLODIPINE [Concomitant]
     Active Substance: AMLODIPINE BESYLATE
     Indication: HYPERTENSION
     Dosage: 10 MG, DAILY
     Route: 048
  2. DOLOPROCT [FLUOCORTOLONE PIVALATE;LIDOCAINE HYDROCHLORIDE] [Concomitant]
     Indication: HAEMORRHOIDS
     Dosage: 1 APPLICATION TWO TIMES A DAY. AS NECESSARY
     Route: 054
  3. KALEORID [Concomitant]
     Active Substance: POTASSIUM CHLORIDE
     Indication: MINERAL SUPPLEMENTATION
     Dosage: 2250 MG, 1 TIME DAILY
     Route: 048
     Dates: start: 20190220
  4. FURIX [CEFUROXIME] [Concomitant]
     Active Substance: CEFUROXIME
     Indication: HYPERTENSION
     Dosage: 20 MG, DAILY
     Route: 048
     Dates: start: 20190220
  5. PICOPREP [Suspect]
     Active Substance: ANHYDROUS CITRIC ACID\MAGNESIUM OXIDE\SODIUM PICOSULFATE
     Indication: COLONIC LAVAGE
     Dosage: UNK
     Route: 048
     Dates: start: 20201022, end: 20201023
  6. VISCOTEARS [Concomitant]
     Active Substance: CARBOMER
     Indication: DRY EYE
     Dosage: 3 DF, DAILY
     Route: 050
     Dates: start: 20190806
  7. PLAQUENIL [Concomitant]
     Active Substance: HYDROXYCHLOROQUINE SULFATE
     Indication: SKIN DISORDER
     Dosage: 200 MG, DAILY
     Route: 048
     Dates: start: 20190606
  8. PROLIA [Concomitant]
     Active Substance: DENOSUMAB
     Indication: OSTEOPOROSIS
     Dosage: UNKNOWN
     Dates: start: 20190611
  9. ELOCON [Concomitant]
     Active Substance: MOMETASONE FUROATE
     Indication: URTICARIA
     Dosage: 1 DF AS NEEDED. MAX. 1 TIME DAILY
     Route: 003
     Dates: start: 20200915

REACTIONS (2)
  - Product use in unapproved indication [Recovered/Resolved]
  - Hyponatraemic coma [Recovered/Resolved]

NARRATIVE: CASE EVENT DATE: 20201022
